FAERS Safety Report 12074960 (Version 1)
Quarter: 2016Q1

REPORT INFORMATION
  Report Type: Spontaneous
  Country: FR (occurrence: FR)
  Receive Date: 20160212
  Receipt Date: 20160212
  Transmission Date: 20160526
  Serious: Yes (Death, Other)
  Sender: FDA-Public Use
  Company Number: FR-GLAXOSMITHKLINE-FR2016GSK019077

PATIENT
  Age: 74 Year
  Sex: Male

DRUGS (10)
  1. NIMBEX [Concomitant]
     Active Substance: CISATRACURIUM BESYLATE
     Dosage: UNK
  2. ADRENALINE [Concomitant]
     Active Substance: EPINEPHRINE
  3. BACTRIM [Concomitant]
     Active Substance: SULFAMETHOXAZOLE\TRIMETHOPRIM
  4. CORDARONE [Concomitant]
     Active Substance: AMIODARONE HYDROCHLORIDE
     Dosage: 3 UNK, TID
  5. SUFENTANIL [Concomitant]
     Active Substance: SUFENTANIL
  6. ORGARAN [Concomitant]
     Active Substance: DANAPAROID SODIUM
  7. TIMENTIN [Suspect]
     Active Substance: CLAVULANATE POTASSIUM\TICARCILLIN DISODIUM
     Indication: STENOTROPHOMONAS INFECTION
     Dosage: 3 G, BID
     Route: 042
     Dates: start: 20160129
  8. DIPRIVAN [Concomitant]
     Active Substance: PROPOFOL
  9. LASILIX [Concomitant]
     Active Substance: FUROSEMIDE
  10. HUMALOG [Concomitant]
     Active Substance: INSULIN LISPRO

REACTIONS (1)
  - Death [Fatal]

NARRATIVE: CASE EVENT DATE: 20160205
